FAERS Safety Report 8333295-2 (Version None)
Quarter: 2012Q2

REPORT INFORMATION
  Report Type: 
  Country: None (occurrence: None)
  Receive Date: 20120503
  Receipt Date: 20120427
  Transmission Date: 20120825
  Serious: Yes (Hospitalization)
  Sender: FDA-Public Use
  Company Number: US-SANOFI-AVENTIS-2012SA025910

PATIENT
  Age: 53 Year
  Sex: Female
  Weight: 49.9 kg

DRUGS (8)
  1. CISPLATIN [Suspect]
     Route: 042
     Dates: start: 20120313, end: 20120313
  2. LOVENOX [Concomitant]
     Route: 065
  3. DEXAMETHASONE [Concomitant]
     Route: 065
  4. CISPLATIN [Suspect]
     Route: 042
     Dates: start: 20120410, end: 20120410
  5. BECLOMETHASONE DIPROPIONATE [Concomitant]
     Route: 065
  6. CABAZITAXEL [Suspect]
     Route: 042
     Dates: start: 20120313, end: 20120313
  7. CABAZITAXEL [Suspect]
     Route: 042
     Dates: start: 20120410, end: 20120410
  8. ZOFRAN [Concomitant]
     Route: 065

REACTIONS (1)
  - VARICES OESOPHAGEAL [None]
